FAERS Safety Report 6790762-0 (Version None)
Quarter: 2010Q2

REPORT INFORMATION
  Report Type: 
  Country: None (occurrence: None)
  Receive Date: 20100624
  Receipt Date: 20100611
  Transmission Date: 20101027
  Serious: Yes (Hospitalization)
  Sender: FDA-Public Use
  Company Number: US-ELI_LILLY_AND_COMPANY-US201006005158

PATIENT
  Sex: Male

DRUGS (10)
  1. CYMBALTA [Suspect]
     Indication: DEPRESSION
     Dosage: 180 MG, UNK
  2. CYMBALTA [Suspect]
     Dosage: 360 MG, UNK
  3. PHENTERMINE [Concomitant]
  4. METOLAZONE [Concomitant]
  5. SEROQUEL [Concomitant]
  6. DIOVAN [Concomitant]
  7. SIMVASTATIN [Concomitant]
  8. PROAIR HFA [Concomitant]
  9. BUDESONIDE [Concomitant]
  10. LASIX [Concomitant]

REACTIONS (2)
  - CHEST PAIN [None]
  - OVERDOSE [None]
